FAERS Safety Report 6322319-X (Version None)
Quarter: 2009Q3

REPORT INFORMATION
  Report Type: 
  Country: None (occurrence: None)
  Receive Date: 20090824
  Receipt Date: 20090203
  Transmission Date: 20100115
  Serious: No
  Sender: FDA-Public Use
  Company Number: US-ABBOTT-09P-163-0501816-00

PATIENT
  Sex: Female

DRUGS (18)
  1. NIASPAN [Suspect]
     Indication: DRUG USE FOR UNKNOWN INDICATION
     Dates: start: 20090127
  2. CRESTOR [Concomitant]
     Indication: DRUG USE FOR UNKNOWN INDICATION
  3. METFORMIN AND SITAGLIPTIN [Concomitant]
     Indication: DRUG USE FOR UNKNOWN INDICATION
     Dosage: 50/1000 TWO TIMES A DAY
  4. ASPIRIN [Concomitant]
     Indication: DRUG USE FOR UNKNOWN INDICATION
  5. CLONIDINE [Concomitant]
     Indication: DRUG USE FOR UNKNOWN INDICATION
  6. GLIMEPIRIDE [Concomitant]
     Indication: DRUG USE FOR UNKNOWN INDICATION
  7. RANITIDINE HCL [Concomitant]
     Indication: DRUG USE FOR UNKNOWN INDICATION
  8. FOLBEE [Concomitant]
     Indication: DRUG USE FOR UNKNOWN INDICATION
  9. B COMPLEX ELX [Concomitant]
     Indication: DRUG USE FOR UNKNOWN INDICATION
  10. DILTIAZEM [Concomitant]
     Indication: DRUG USE FOR UNKNOWN INDICATION
  11. NITROGLYCERIN [Concomitant]
     Indication: DRUG USE FOR UNKNOWN INDICATION
  12. COLACE [Concomitant]
     Indication: DRUG USE FOR UNKNOWN INDICATION
  13. OSCAL [Concomitant]
     Indication: DRUG USE FOR UNKNOWN INDICATION
  14. CLINDEX [Concomitant]
     Indication: DRUG USE FOR UNKNOWN INDICATION
  15. LASIX [Concomitant]
     Indication: DRUG USE FOR UNKNOWN INDICATION
  16. TEKTURNA [Concomitant]
     Indication: DRUG USE FOR UNKNOWN INDICATION
     Dosage: 300/12
  17. ALBUTEROL [Concomitant]
     Indication: DRUG USE FOR UNKNOWN INDICATION
  18. SYMLIN [Concomitant]
     Indication: DRUG USE FOR UNKNOWN INDICATION

REACTIONS (2)
  - ABDOMINAL PAIN [None]
  - BLOOD GLUCOSE INCREASED [None]
